APPROVED DRUG PRODUCT: NITROLINGUAL
Active Ingredient: NITROGLYCERIN
Strength: 0.4MG/SPRAY
Dosage Form/Route: AEROSOL;SUBLINGUAL
Application: N018705 | Product #001
Applicant: POHL BOSKAMP
Approved: Oct 31, 1985 | RLD: No | RS: No | Type: DISCN